FAERS Safety Report 7427873-2 (Version None)
Quarter: 2011Q2

REPORT INFORMATION
  Report Type: 
  Country: None (occurrence: None)
  Receive Date: 20110421
  Receipt Date: 20110410
  Transmission Date: 20111010
  Serious: Yes (Disabling)
  Sender: FDA-Public Use
  Company Number: CA-ELI_LILLY_AND_COMPANY-CA201104002909

PATIENT
  Age: 88 Year
  Sex: Female

DRUGS (4)
  1. PANTOPRAZOLE [Concomitant]
  2. SYNTHROID [Concomitant]
  3. FORTEO [Suspect]
     Indication: OSTEOPOROSIS
     Dosage: 20 UG, DAILY (1/D)
     Route: 058
     Dates: start: 20100729, end: 20100826
  4. CALCIUM [Concomitant]

REACTIONS (6)
  - DYSSTASIA [None]
  - ABASIA [None]
  - FATIGUE [None]
  - PAIN [None]
  - VOMITING [None]
  - DECREASED APPETITE [None]
